FAERS Safety Report 24060135 (Version 2)
Quarter: 2024Q3

REPORT INFORMATION
  Report Type: Spontaneous
  Country: US (occurrence: US)
  Receive Date: 20240708
  Receipt Date: 20240721
  Transmission Date: 20241017
  Serious: Yes (Life-Threatening, Hospitalization)
  Sender: TEVA
  Company Number: US-TEVA-VS-3214670

PATIENT
  Age: 35 Year
  Sex: Male

DRUGS (1)
  1. ARIPIPRAZOLE [Suspect]
     Active Substance: ARIPIPRAZOLE
     Indication: Schizophrenia
     Route: 065

REACTIONS (12)
  - Diabetes mellitus [Unknown]
  - Hypertriglyceridaemia [Unknown]
  - Diabetic ketoacidosis [Unknown]
  - Cognitive disorder [Unknown]
  - Distributive shock [Unknown]
  - Renal tubular necrosis [Unknown]
  - Cardio-respiratory arrest [Recovering/Resolving]
  - Brain injury [Unknown]
  - Slow response to stimuli [Unknown]
  - Nervous system disorder [Unknown]
  - Pancreatitis acute [Unknown]
  - Aphasia [Unknown]
